FAERS Safety Report 10502524 (Version 2)
Quarter: 2015Q2

REPORT INFORMATION
  Report Type: Report from Study
  Country: US (occurrence: US)
  Receive Date: 20141007
  Receipt Date: 20150630
  Transmission Date: 20150821
  Serious: Yes (Death, Other)
  Sender: FDA-Public Use
  Company Number: US-GILEAD-2014-0117352

PATIENT
  Age: 87 Year
  Sex: Female

DRUGS (18)
  1. LOPRESSOR [Concomitant]
     Active Substance: METOPROLOL TARTRATE
  2. XOPENEX [Concomitant]
     Active Substance: LEVALBUTEROL HYDROCHLORIDE
  3. VYTORIN [Concomitant]
     Active Substance: EZETIMIBE\SIMVASTATIN
  4. LATANOPROST. [Concomitant]
     Active Substance: LATANOPROST
  5. AZOPT [Concomitant]
     Active Substance: BRINZOLAMIDE
  6. ZOMETA [Concomitant]
     Active Substance: ZOLEDRONIC ACID
  7. SPIRIVA [Concomitant]
     Active Substance: TIOTROPIUM BROMIDE MONOHYDRATE
  8. LEVOTHYROXINE [Concomitant]
     Active Substance: LEVOTHYROXINE
  9. ARANESP [Concomitant]
     Active Substance: DARBEPOETIN ALFA
  10. NEXIUM [Concomitant]
     Active Substance: ESOMEPRAZOLE MAGNESIUM
  11. FUROSEMIDE. [Concomitant]
     Active Substance: FUROSEMIDE
  12. AMBRISENTAN [Suspect]
     Active Substance: AMBRISENTAN
     Indication: PULMONARY ARTERIAL HYPERTENSION
     Dosage: 10 MG, QD
     Route: 065
     Dates: start: 2014
  13. ADCIRCA [Concomitant]
     Active Substance: TADALAFIL
  14. NIASPAN [Concomitant]
     Active Substance: NIACIN
  15. PRADAXA [Concomitant]
     Active Substance: DABIGATRAN ETEXILATE MESYLATE
  16. MAGNESIUM [Concomitant]
     Active Substance: MAGNESIUM
  17. CITRACAL                           /00751520/ [Concomitant]
  18. AMIODARONE [Concomitant]
     Active Substance: AMIODARONE

REACTIONS (1)
  - Right ventricular failure [Fatal]
